FAERS Safety Report 8161040-2 (Version None)
Quarter: 2012Q1

REPORT INFORMATION
  Report Type: 
  Country: None (occurrence: None)
  Receive Date: 20120224
  Receipt Date: 20120214
  Transmission Date: 20120608
  Serious: Yes (Hospitalization)
  Sender: FDA-Public Use
  Company Number: US-BIOGENIDEC-2006BI019021

PATIENT
  Age: 68 Year
  Sex: Female
  Weight: 74 kg

DRUGS (3)
  1. AVONEX [Suspect]
     Route: 030
     Dates: start: 20030801
  2. INSULIN [Concomitant]
     Indication: DIABETES MELLITUS
     Dates: start: 19760101
  3. AVONEX [Suspect]
     Indication: MULTIPLE SCLEROSIS
     Route: 030
     Dates: start: 20000101, end: 20030801

REACTIONS (12)
  - HYPERTENSION [None]
  - VISUAL IMPAIRMENT [None]
  - BLOOD CHOLESTEROL INCREASED [None]
  - CAROTID ARTERY OCCLUSION [None]
  - BALANCE DISORDER [None]
  - GAIT DISTURBANCE [None]
  - CATARACT [None]
  - MULTIPLE SCLEROSIS [None]
  - COGNITIVE DISORDER [None]
  - FALL [None]
  - HEAD INJURY [None]
  - CEREBRAL THROMBOSIS [None]
